FAERS Safety Report 17373150 (Version 3)
Quarter: 2020Q2

REPORT INFORMATION
  Report Type: Report from Study
  Country: US (occurrence: US)
  Receive Date: 20200205
  Receipt Date: 20200526
  Transmission Date: 20200713
  Serious: Yes (Hospitalization)
  Sender: FDA-Public Use
  Company Number: US-PFIZER INC-2020040145

PATIENT
  Age: 4 Year
  Sex: Female
  Weight: 23.5 kg

DRUGS (6)
  1. METHOTREXATE SODIUM. [Suspect]
     Active Substance: METHOTREXATE SODIUM
     Indication: B PRECURSOR TYPE ACUTE LEUKAEMIA
     Dosage: 12 MG (INTRATHECAL), MAINTENANCE DAY 1,29
     Route: 037
     Dates: start: 20191203
  2. VINCRISTINE SULFATE. [Suspect]
     Active Substance: VINCRISTINE SULFATE
     Indication: B PRECURSOR TYPE ACUTE LEUKAEMIA
     Dosage: 1.26 MG, MAINTENANCE DAY 1,29
     Route: 042
     Dates: start: 20191203
  3. INCB018424 [Suspect]
     Active Substance: RUXOLITINIB
     Indication: B PRECURSOR TYPE ACUTE LEUKAEMIA
     Dosage: 40 MG (TABLET), 2X/DAY (MAINTENANCE DAY 1-14, 29-33)
     Route: 048
     Dates: start: 20191203
  4. PREDNISONE. [Suspect]
     Active Substance: PREDNISONE
     Indication: B PRECURSOR TYPE ACUTE LEUKAEMIA
     Dosage: 17.5 (TABLET) MG, MAINTENANCE DAY 1-5, 29-33
     Route: 048
     Dates: start: 20191203
  5. METHOTREXATE SODIUM. [Suspect]
     Active Substance: METHOTREXATE SODIUM
     Indication: B PRECURSOR TYPE ACUTE LEUKAEMIA
     Dosage: 16.25 (TABLET) MG, MAINTENANCE DAY 8, 15, 22
     Route: 048
     Dates: start: 20191210
  6. MERCAPTOPURINE. [Suspect]
     Active Substance: MERCAPTOPURINE
     Indication: B PRECURSOR TYPE ACUTE LEUKAEMIA
     Dosage: 63 MG (TABLET), MAINTENANCE DAY 1-84
     Route: 048
     Dates: start: 20191203

REACTIONS (1)
  - Escherichia urinary tract infection [Recovered/Resolved]

NARRATIVE: CASE EVENT DATE: 20200106
